FAERS Safety Report 17531095 (Version 3)
Quarter: 2021Q2

REPORT INFORMATION
  Report Type: Spontaneous
  Country: FR (occurrence: FR)
  Receive Date: 20200312
  Receipt Date: 20210520
  Transmission Date: 20210716
  Serious: Yes (Hospitalization, Other)
  Sender: FDA-Public Use
  Company Number: FR-SA-2020SA058950

PATIENT
  Age: 74 Year
  Sex: Female

DRUGS (12)
  1. LOVENOX [Suspect]
     Active Substance: ENOXAPARIN SODIUM
     Indication: ARRHYTHMIA
     Dosage: UNK
     Route: 023
  2. LOVENOX [Suspect]
     Active Substance: ENOXAPARIN SODIUM
     Indication: SKIN TEST
  3. BISOPROLOL [Concomitant]
     Active Substance: BISOPROLOL
     Indication: ARRHYTHMIA
  4. CALCIPARINE [Suspect]
     Active Substance: HEPARIN CALCIUM
     Indication: SKIN TEST
     Dosage: UNK
     Route: 023
  5. CALCIPARINE [Suspect]
     Active Substance: HEPARIN CALCIUM
     Indication: SKIN TEST
     Dosage: UNK
     Route: 003
  6. ORGARAN [Suspect]
     Active Substance: DANAPAROID SODIUM
     Indication: SKIN TEST
  7. LOVENOX [Suspect]
     Active Substance: ENOXAPARIN SODIUM
     Indication: SKIN TEST
  8. ORGARAN [Suspect]
     Active Substance: DANAPAROID SODIUM
     Indication: SKIN TEST
     Dosage: UNK
     Route: 023
  9. HEPARIN SODIUM. [Suspect]
     Active Substance: HEPARIN SODIUM
     Indication: SKIN TEST
  10. ARIXTRA [Concomitant]
     Active Substance: FONDAPARINUX SODIUM
     Indication: SKIN TEST
     Dosage: UNK
     Route: 023
  11. ARIXTRA [Concomitant]
     Active Substance: FONDAPARINUX SODIUM
     Indication: SKIN TEST
  12. HEPARIN SODIUM. [Suspect]
     Active Substance: HEPARIN SODIUM
     Indication: SKIN TEST
     Dosage: UNK
     Route: 023

REACTIONS (5)
  - Acute generalised exanthematous pustulosis [Recovering/Resolving]
  - Leukocytosis [Recovering/Resolving]
  - Cross sensitivity reaction [Unknown]
  - Rash erythematous [Recovering/Resolving]
  - Pustule [Recovering/Resolving]
